FAERS Safety Report 6202795-3 (Version None)
Quarter: 2009Q2

REPORT INFORMATION
  Report Type: 
  Country: None (occurrence: None)
  Receive Date: 20090526
  Receipt Date: 20090511
  Transmission Date: 20091009
  Serious: Yes (Other)
  Sender: FDA-Public Use
  Company Number: FR-PFIZER INC-2007054415

PATIENT
  Age: 45 Year

DRUGS (28)
  1. VORICONAZOLE [Suspect]
     Indication: ANTIFUNGAL PROPHYLAXIS
     Dosage: 420 MG, 2X/DAY
     Route: 042
     Dates: start: 20070102, end: 20070102
  2. VORICONAZOLE [Suspect]
     Dosage: 280 MG, 2X/DAY
     Route: 042
     Dates: start: 20070103, end: 20070103
  3. VORICONAZOLE [Suspect]
     Dosage: 200 MG, 2X/DAY
     Route: 048
     Dates: start: 20070104, end: 20070113
  4. VORICONAZOLE [Suspect]
     Dosage: 200 MG, 1X/DAY
     Route: 048
     Dates: start: 20070114, end: 20070114
  5. VORICONAZOLE [Suspect]
     Dosage: 200 MG, 2X/DAY
     Route: 048
     Dates: start: 20070115, end: 20070122
  6. VORICONAZOLE [Suspect]
     Dosage: 200 MG, 1X/DAY
     Route: 048
     Dates: start: 20070123, end: 20070123
  7. VORICONAZOLE [Suspect]
     Dosage: 200 MG, 2X/DAY
     Route: 048
     Dates: start: 20070124, end: 20070223
  8. COLISTINE [Concomitant]
     Route: 048
     Dates: start: 20061222
  9. NEOMYCIN SULFATE [Concomitant]
     Route: 048
     Dates: start: 20061222
  10. VANCOMYCIN HYDROCHLORIDE [Concomitant]
     Route: 048
     Dates: start: 20061222
  11. ACIDE URSODESOXYCHOLIQUE [Concomitant]
     Route: 048
     Dates: start: 20061222
  12. LEVOTHYROXINE SODIQUE [Concomitant]
     Route: 048
  13. BROMAZEPAM [Concomitant]
     Route: 048
     Dates: start: 20061222
  14. ACYCLOVIR SODIUM [Concomitant]
     Route: 048
     Dates: start: 20061224
  15. CYCLOSPORINE [Concomitant]
     Route: 048
     Dates: start: 20061228, end: 20070227
  16. METHYLPREDNISOLONE [Concomitant]
     Route: 042
     Dates: start: 20070129, end: 20070302
  17. CLORAZEPATE DIPOTASSIUM [Concomitant]
     Route: 042
     Dates: start: 20070106, end: 20070228
  18. ZOLPIDEM TARTRATE [Concomitant]
     Route: 048
     Dates: start: 20070119, end: 20070302
  19. ESOMEPRAZOLE MAGNESIUM TRIHYDRATE [Concomitant]
     Route: 042
     Dates: start: 20070123
  20. ALL OTHER THERAPEUTIC PRODUCTS [Concomitant]
     Route: 042
     Dates: start: 20070130, end: 20070206
  21. NICARDIPINE CHLORHYDRATE [Concomitant]
     Route: 048
     Dates: start: 20070130, end: 20070301
  22. CEFTAZIDIME PENTAHYDRATE [Concomitant]
     Route: 042
     Dates: start: 20070202, end: 20070302
  23. DOMPERIDONE [Concomitant]
     Route: 048
     Dates: start: 20070203, end: 20070309
  24. URAPIDIL [Concomitant]
     Route: 048
     Dates: start: 20070208, end: 20070302
  25. ACIDE FOLIQUE [Concomitant]
     Route: 042
     Dates: start: 20061230
  26. DEXCHLORPHENIRAMINE MALEATE [Concomitant]
     Route: 042
     Dates: start: 20070102
  27. IMIPENEM [Concomitant]
     Route: 042
     Dates: start: 20070102, end: 20070202
  28. MAGNESIUM HYDROXIDE [Concomitant]
     Route: 042
     Dates: start: 20070107

REACTIONS (1)
  - TRANSPLANT REJECTION [None]
